FAERS Safety Report 8144000-7 (Version None)
Quarter: 2012Q1

REPORT INFORMATION
  Report Type: 
  Country: None (occurrence: None)
  Receive Date: 20120217
  Receipt Date: 20120217
  Transmission Date: 20120608
  Serious: Yes (Other)
  Sender: FDA-Public Use
  Company Number: None

PATIENT
  Age: 59 Year
  Sex: Female
  Weight: 102.05 kg

DRUGS (1)
  1. MULTAQ [Suspect]
     Indication: ATRIAL FIBRILLATION
     Dosage: 400 MG.
     Route: 048
     Dates: start: 20111118, end: 20120217

REACTIONS (5)
  - NO THERAPEUTIC RESPONSE [None]
  - PRODUCT LABEL ISSUE [None]
  - FEAR [None]
  - REACTION TO DRUG EXCIPIENTS [None]
  - DIARRHOEA [None]
